APPROVED DRUG PRODUCT: BREXPIPRAZOLE
Active Ingredient: BREXPIPRAZOLE
Strength: 0.25MG
Dosage Form/Route: TABLET;ORAL
Application: A213683 | Product #001 | TE Code: AB
Applicant: ALEMBIC PHARMACEUTICALS LTD
Approved: Jan 13, 2025 | RLD: No | RS: No | Type: RX